FAERS Safety Report 13571870 (Version 1)
Quarter: 2017Q2

REPORT INFORMATION
  Report Type: Spontaneous
  Country: IN (occurrence: IN)
  Receive Date: 20170523
  Receipt Date: 20170523
  Transmission Date: 20170830
  Serious: Yes (Other)
  Sender: FDA-Public Use
  Company Number: IN-CPL-000008

PATIENT
  Age: 44 Year
  Sex: Male

DRUGS (5)
  1. TENOFOVIR/TENOFOVIR DISOPROXIL FUMARATE [Concomitant]
     Indication: ACQUIRED IMMUNODEFICIENCY SYNDROME
     Dates: start: 2007
  2. ATAZANAVIR [Concomitant]
     Active Substance: ATAZANAVIR
     Indication: ACQUIRED IMMUNODEFICIENCY SYNDROME
     Dates: start: 2007
  3. ACICLOVIR [Suspect]
     Active Substance: ACYCLOVIR
     Indication: HERPES VIRUS INFECTION
  4. RITONAVIR. [Concomitant]
     Active Substance: RITONAVIR
     Indication: ACQUIRED IMMUNODEFICIENCY SYNDROME
     Dates: start: 2007
  5. LAMIVUDINE. [Concomitant]
     Active Substance: LAMIVUDINE
     Indication: ACQUIRED IMMUNODEFICIENCY SYNDROME
     Dates: start: 2007

REACTIONS (2)
  - Drug resistance [None]
  - Treatment failure [Unknown]
